FAERS Safety Report 7426760 (Version 4)
Quarter: 2019Q1

REPORT INFORMATION
  Report Type: Spontaneous
  Country: GB (occurrence: GB)
  Receive Date: 20100621
  Receipt Date: 20190212
  Transmission Date: 20190418
  Serious: Yes (Disabling)
  Sender: FDA-Public Use
  Company Number: GB-PFIZER INC-2010071997

PATIENT
  Age: 44 Year
  Sex: Male

DRUGS (1)
  1. CHAMPIX [Suspect]
     Active Substance: VARENICLINE TARTRATE
     Dosage: UNK
     Route: 048

REACTIONS (3)
  - Paraesthesia oral [Not Recovered/Not Resolved]
  - Facial paralysis [Not Recovered/Not Resolved]
  - Dysgeusia [Not Recovered/Not Resolved]
